FAERS Safety Report 7826111-6 (Version None)
Quarter: 2011Q4

REPORT INFORMATION
  Report Type: 
  Country: None (occurrence: None)
  Receive Date: 20111019
  Receipt Date: 20111007
  Transmission Date: 20120403
  Serious: Yes (Other)
  Sender: FDA-Public Use
  Company Number: FR-ROCHE-746949

PATIENT
  Sex: Female
  Weight: 78 kg

DRUGS (10)
  1. RACECADOTRIL [Concomitant]
  2. COLD MEDICATION NOS [Concomitant]
     Dosage: DOSE: 1 APPLICATION AS NEEDED
  3. VEMURAFENIB [Suspect]
     Indication: MALIGNANT MELANOMA
     Dosage: LAST DOSE PRIOR TO SAE 05 JAN 11 (ONSET 16 FEB11):31 MAR 11 (ONSET 1 APR11)
     Route: 048
  4. PINAVERIUM BROMIDE [Concomitant]
  5. BROMAZEPAM [Concomitant]
  6. DOMPERIDONE [Concomitant]
     Dates: start: 20101105, end: 20101126
  7. LOPERAMIDE HCL [Concomitant]
     Dosage: FREQUENCY: AS NEEDED
  8. VAXIGRIP [Concomitant]
     Dosage: 1 INJECTION
     Dates: start: 20101118, end: 20101118
  9. ZOPICLONE [Concomitant]
     Dosage: FREQUENCY: AT BEDTIME
  10. NIFUROXAZIDE [Concomitant]

REACTIONS (2)
  - MALIGNANT MELANOMA [None]
  - SQUAMOUS CELL CARCINOMA OF SKIN [None]
